FAERS Safety Report 16395195 (Version 1)
Quarter: 2019Q3

REPORT INFORMATION
  Report Type: Spontaneous
  Country: US (occurrence: US)
  Receive Date: 20190604
  Receipt Date: 20190604
  Transmission Date: 20191004
  Serious: Yes (Other)
  Sender: FDA-Public Use
  Company Number: None

PATIENT
  Sex: Female
  Weight: 69.3 kg

DRUGS (13)
  1. IBRANCE [Suspect]
     Active Substance: PALBOCICLIB
     Indication: BREAST CANCER FEMALE
     Route: 048
     Dates: start: 20171130
  2. XANAX [Concomitant]
     Active Substance: ALPRAZOLAM
  3. ANASTROZOLE. [Concomitant]
     Active Substance: ANASTROZOLE
  4. JANUMET [Concomitant]
     Active Substance: METFORMIN HYDROCHLORIDE\SITAGLIPTIN PHOSPHATE
  5. HUMALOG [Concomitant]
     Active Substance: INSULIN LISPRO
  6. DOCUSATE [Concomitant]
     Active Substance: DOCUSATE
  7. VIT B [Concomitant]
     Active Substance: VITAMIN B
  8. BYDUREON [Concomitant]
     Active Substance: EXENATIDE
  9. CITALOPRAM [Concomitant]
     Active Substance: CITALOPRAM HYDROBROMIDE
  10. BYSTOLIC [Concomitant]
     Active Substance: NEBIVOLOL HYDROCHLORIDE
  11. MIRALAX [Concomitant]
     Active Substance: POLYETHYLENE GLYCOL 3350
  12. VIT D [Concomitant]
     Active Substance: VITAMIN D NOS
  13. OXYCONTIN [Concomitant]
     Active Substance: OXYCODONE HYDROCHLORIDE

REACTIONS (1)
  - Disease progression [None]
